FAERS Safety Report 14091735 (Version 5)
Quarter: 2018Q3

REPORT INFORMATION
  Report Type: Spontaneous
  Country: US (occurrence: US)
  Receive Date: 20171016
  Receipt Date: 20180717
  Transmission Date: 20181010
  Serious: No
  Sender: FDA-Public Use
  Company Number: US-PFIZER INC-2017440497

PATIENT
  Age: 53 Year
  Sex: Female
  Weight: 63 kg

DRUGS (7)
  1. FOLIC ACID. [Concomitant]
     Active Substance: FOLIC ACID
     Dosage: 1 MG, DAILY
  2. LEFLUNOMIDE. [Suspect]
     Active Substance: LEFLUNOMIDE
     Indication: RHEUMATOID ARTHRITIS
     Dosage: 20 MG, DAILY
     Dates: start: 2014
  3. XELJANZ [Concomitant]
     Active Substance: TOFACITINIB CITRATE
     Dosage: 5 MG, 2X/DAY (ONE IN MORNING, ONE IN NIGHT)
     Dates: end: 20170801
  4. XELJANZ [Concomitant]
     Active Substance: TOFACITINIB CITRATE
     Dosage: 5 MG, 2X/DAY
  5. ENBREL [Suspect]
     Active Substance: ETANERCEPT
     Dosage: UNK
  6. METHOTREXATE SODIUM. [Suspect]
     Active Substance: METHOTREXATE SODIUM
     Indication: RHEUMATOID ARTHRITIS
     Dosage: 1 ML, WEEKLY
     Dates: start: 2011
  7. HUMIRA [Suspect]
     Active Substance: ADALIMUMAB
     Dosage: UNK

REACTIONS (1)
  - Drug ineffective [Unknown]
